FAERS Safety Report 19902133 (Version 1)
Quarter: 2021Q3

REPORT INFORMATION
  Report Type: Spontaneous
  Country: CA (occurrence: CA)
  Receive Date: 20210930
  Receipt Date: 20210930
  Transmission Date: 20211014
  Serious: Yes (Hospitalization, Other)
  Sender: FDA-Public Use
  Company Number: CA-TEVA-2021-CA-1959020

PATIENT
  Age: 34 Year
  Sex: Female

DRUGS (3)
  1. CEPHALEXIN. [Suspect]
     Active Substance: CEPHALEXIN
     Indication: POSTOPERATIVE WOUND INFECTION
     Dosage: 2000 MILLIGRAM DAILY;
     Route: 065
  2. METRONIDAZOLE. [Suspect]
     Active Substance: METRONIDAZOLE
     Indication: COLECTOMY
     Dosage: 750 MILLIGRAM DAILY;
     Route: 065
  3. REMICADE [Suspect]
     Active Substance: INFLIXIMAB
     Indication: CROHN^S DISEASE
     Route: 042

REACTIONS (3)
  - Colectomy [Unknown]
  - Postoperative wound infection [Unknown]
  - Sluggishness [Unknown]
